FAERS Safety Report 21333239 (Version 1)
Quarter: 2022Q3

REPORT INFORMATION
  Report Type: Spontaneous
  Country: TR (occurrence: TR)
  Receive Date: 20220914
  Receipt Date: 20220914
  Transmission Date: 20221027
  Serious: Yes (Other)
  Sender: FDA-Public Use
  Company Number: TR-NOVARTISPH-NVSC2022TR203729

PATIENT
  Age: 51 Year
  Sex: Male

DRUGS (2)
  1. CALCIUM CARBONATE\CALCIUM LACTATE GLUCONATE [Suspect]
     Active Substance: CALCIUM CARBONATE\CALCIUM LACTATE GLUCONATE
     Indication: Fibrous dysplasia of bone
     Dosage: 1 DOSAGE FORM, BID (2X1 FOR MANY YEARS) (FOR 35 OR 36 YEARS (SINCE THE AGE OF 14 OR 15))
     Route: 048
  2. CALCIUM CARBONATE\CALCIUM LACTATE GLUCONATE [Suspect]
     Active Substance: CALCIUM CARBONATE\CALCIUM LACTATE GLUCONATE
     Indication: Osteoporosis
     Dosage: 1 DOSAGE FORM, QD
     Route: 048

REACTIONS (10)
  - Fibrous dysplasia of bone [Unknown]
  - Disease progression [Unknown]
  - Pain [Unknown]
  - Gait disturbance [Not Recovered/Not Resolved]
  - Pain in extremity [Unknown]
  - Pathological fracture [Unknown]
  - Stress fracture [Unknown]
  - Product dose omission issue [Not Recovered/Not Resolved]
  - Product use in unapproved indication [Unknown]
  - Drug ineffective [Unknown]
